FAERS Safety Report 20690511 (Version 1)
Quarter: 2022Q2

REPORT INFORMATION
  Report Type: Spontaneous
  Country: AT (occurrence: AT)
  Receive Date: 20220408
  Receipt Date: 20220408
  Transmission Date: 20220720
  Serious: Yes (Life-Threatening, Hospitalization, Other)
  Sender: FDA-Public Use
  Company Number: AT-KYOWAKIRIN-2022BKK004797

PATIENT

DRUGS (2)
  1. POTELIGEO [Suspect]
     Active Substance: MOGAMULIZUMAB-KPKC
     Indication: Cutaneous T-cell lymphoma
     Dosage: 40 MG
     Route: 065
     Dates: start: 20211029
  2. POTELIGEO [Suspect]
     Active Substance: MOGAMULIZUMAB-KPKC
     Dosage: 80 MG
     Route: 065
     Dates: start: 20210420, end: 20211029

REACTIONS (6)
  - Cardiomyopathy [Unknown]
  - Ejection fraction decreased [Unknown]
  - Coronary artery stenosis [Unknown]
  - Myocarditis [Unknown]
  - Myocardial ischaemia [Unknown]
  - Stress cardiomyopathy [Unknown]

NARRATIVE: CASE EVENT DATE: 20210101
